FAERS Safety Report 5176687-5 (Version None)
Quarter: 2006Q4

REPORT INFORMATION
  Report Type: 
  Country: None (occurrence: None)
  Receive Date: 20061218
  Receipt Date: 20061207
  Transmission Date: 20070319
  Serious: Yes (Hospitalization)
  Sender: FDA-Public Use
  Company Number: US-JNJFOC-20060905573

PATIENT
  Sex: Female
  Weight: 55 kg

DRUGS (8)
  1. REMICADE [Suspect]
     Indication: CROHN'S DISEASE
     Route: 042
  2. METHOTREXATE [Concomitant]
     Indication: RHEUMATOID ARTHRITIS
  3. XANAX [Concomitant]
     Indication: ANXIETY
  4. PREDNISONE TAB [Concomitant]
     Indication: PREMEDICATION
     Route: 048
  5. PANTOPRAZOLE SODIUM [Concomitant]
     Indication: GASTROOESOPHAGEAL REFLUX DISEASE
     Route: 048
  6. FOLIC ACID [Concomitant]
     Indication: NUTRITIONAL SUPPORT
     Route: 048
  7. HYDROCORTISONE [Concomitant]
     Indication: PREMEDICATION
  8. ZYRTEC [Concomitant]
     Indication: PREMEDICATION

REACTIONS (3)
  - INTESTINAL RESECTION [None]
  - JUGULAR VEIN THROMBOSIS [None]
  - SUPERIOR SAGITTAL SINUS THROMBOSIS [None]
